FAERS Safety Report 18807714 (Version 2)
Quarter: 2021Q1

REPORT INFORMATION
  Report Type: Other
  Country: IT (occurrence: IT)
  Receive Date: 20210129
  Receipt Date: 20210305
  Transmission Date: 20210419
  Serious: Yes (Hospitalization)
  Sender: FDA-Public Use
  Company Number: IT-MACLEODS PHARMACEUTICALS US LTD-MAC2021029889

PATIENT

DRUGS (2)
  1. TEXTAZO [Concomitant]
     Active Substance: PIPERACILLIN SODIUM\TAZOBACTAM SODIUM
     Indication: PRODUCT USED FOR UNKNOWN INDICATION
     Dosage: UNK, POWDER AND SOLVENT FOR SOLUTION FOR INJECTION
     Route: 065
     Dates: start: 20201125, end: 20201218
  2. LEVOFLOXACIN 750 MG TABLET [Suspect]
     Active Substance: LEVOFLOXACIN
     Indication: LUNG ABSCESS
     Dosage: 750 MILLIGRAM, QD
     Route: 048
     Dates: start: 20201125, end: 20201203

REACTIONS (4)
  - Neutropenia [Recovered/Resolved]
  - Agranulocytosis [Recovered/Resolved]
  - Gamma-glutamyltransferase increased [Recovered/Resolved]
  - Transaminases increased [Recovered/Resolved]

NARRATIVE: CASE EVENT DATE: 20201130
